FAERS Safety Report 9565615 (Version 3)
Quarter: 2016Q2

REPORT INFORMATION
  Report Type: Spontaneous
  Country: FR (occurrence: FR)
  Receive Date: 20130930
  Receipt Date: 20160530
  Transmission Date: 20160815
  Serious: Yes (Other)
  Sender: FDA-Public Use
  Company Number: FR-JNJFOC-20130914398

PATIENT
  Age: 31 Year
  Sex: Male
  Weight: 79 kg

DRUGS (1)
  1. XEPLION [Suspect]
     Active Substance: PALIPERIDONE PALMITATE
     Indication: BIPOLAR DISORDER
     Dosage: INITIATED 3 MONTHS AGO
     Route: 030
     Dates: start: 20130306, end: 20131017

REACTIONS (6)
  - Suicidal ideation [Recovered/Resolved]
  - Impaired work ability [Unknown]
  - Nervousness [Unknown]
  - Mental impairment [Unknown]
  - Off label use [Unknown]
  - Disturbance in attention [Unknown]

NARRATIVE: CASE EVENT DATE: 20130907
